FAERS Safety Report 4691447-7 (Version None)
Quarter: 2005Q2

REPORT INFORMATION
  Report Type: 
  Country: None (occurrence: None)
  Receive Date: 20050613
  Receipt Date: 20050315
  Transmission Date: 20051028
  Serious: Yes (Other)
  Sender: FDA-Public Use
  Company Number: S04-USA-06983-01

PATIENT
  Age: 58 Year
  Sex: Female

DRUGS (5)
  1. LEXAPRO [Suspect]
     Indication: DEPRESSION
     Dosage: 20 MG QD PO
     Route: 048
     Dates: start: 20040924, end: 20041014
  2. LEXAPRO [Suspect]
     Indication: DEPRESSION
     Dosage: 10 MG QD PO
     Route: 048
     Dates: start: 20040806, end: 20040923
  3. CLONAZEPAM [Concomitant]
  4. SEREVENT [Concomitant]
  5. ADVAIR [Concomitant]

REACTIONS (1)
  - DYSTONIA [None]
